FAERS Safety Report 4506286-7 (Version None)
Quarter: 2004Q4

REPORT INFORMATION
  Report Type: 
  Country: None (occurrence: None)
  Receive Date: 20041025
  Receipt Date: 20040315
  Transmission Date: 20050328
  Serious: Yes (Hospitalization, Other)
  Sender: FDA-Public Use
  Company Number: US-JNJFOC-20040101053

PATIENT
  Age: 88 Year
  Sex: Female
  Weight: 54.4316 kg

DRUGS (6)
  1. REMICADE [Suspect]
     Dosage: INTRAVENOUS
     Route: 042
     Dates: start: 20031022
  2. HUMIRA [Concomitant]
  3. CELEREX (CELECOXIB) [Concomitant]
  4. PLAQUENIL [Concomitant]
  5. DARVOCET-N 100 [Concomitant]
  6. FOSAMAX [Concomitant]

REACTIONS (4)
  - BACTERIAL INFECTION [None]
  - DYSPNOEA [None]
  - INFUSION RELATED REACTION [None]
  - URTICARIA [None]
